FAERS Safety Report 21177295 (Version 1)
Quarter: 2022Q3

REPORT INFORMATION
  Report Type: Spontaneous
  Country: GB (occurrence: GB)
  Receive Date: 20220805
  Receipt Date: 20220805
  Transmission Date: 20221026
  Serious: Yes (Hospitalization)
  Sender: FDA-Public Use
  Company Number: None

PATIENT
  Age: 56 Year
  Sex: Male

DRUGS (10)
  1. ATORVASTATIN [Suspect]
     Active Substance: ATORVASTATIN
     Indication: Blood cholesterol
     Dosage: 80 MG AT NIGHT
     Dates: end: 20220719
  2. ASPIRIN [Concomitant]
     Active Substance: ASPIRIN
  3. BISOPROLOL [Concomitant]
     Active Substance: BISOPROLOL
  4. CLONAZEPAM [Concomitant]
     Active Substance: CLONAZEPAM
  5. FENOFIBRATE [Concomitant]
     Active Substance: FENOFIBRATE
  6. FOLIC ACID [Concomitant]
     Active Substance: FOLIC ACID
  7. LANTUS [Concomitant]
     Active Substance: INSULIN GLARGINE
  8. NOVORAPID [Concomitant]
     Active Substance: INSULIN ASPART
  9. OMEPRAZOLE [Concomitant]
     Active Substance: OMEPRAZOLE
  10. RAMIPRIL [Concomitant]
     Active Substance: RAMIPRIL

REACTIONS (1)
  - Blood creatine phosphokinase [Recovering/Resolving]

NARRATIVE: CASE EVENT DATE: 20220720
